FAERS Safety Report 17505035 (Version 2)
Quarter: 2020Q2

REPORT INFORMATION
  Report Type: Spontaneous
  Country: US (occurrence: US)
  Receive Date: 20200305
  Receipt Date: 20200527
  Transmission Date: 20200713
  Serious: No
  Sender: FDA-Public Use
  Company Number: US-ELI_LILLY_AND_COMPANY-US202001013259

PATIENT
  Age: 68 Year
  Sex: Female

DRUGS (2)
  1. MAXALT [Concomitant]
     Active Substance: RIZATRIPTAN BENZOATE
     Indication: MIGRAINE
     Dosage: 10 MG, UNKNOWN
     Route: 065
  2. EMGALITY [Suspect]
     Active Substance: GALCANEZUMAB-GNLM
     Indication: MIGRAINE
     Dosage: 120 MG, MONTHLY (1/M)
     Route: 058
     Dates: start: 201910

REACTIONS (3)
  - Migraine [Not Recovered/Not Resolved]
  - Feeling abnormal [Unknown]
  - Product dose omission [Unknown]

NARRATIVE: CASE EVENT DATE: 201912
